FAERS Safety Report 18116840 (Version 2)
Quarter: 2021Q3

REPORT INFORMATION
  Report Type: Spontaneous
  Country: US (occurrence: US)
  Receive Date: 20200806
  Receipt Date: 20210825
  Transmission Date: 20211014
  Serious: No
  Sender: FDA-Public Use
  Company Number: US-SA-2020SA199130

PATIENT
  Age: 57 Year
  Sex: Female
  Weight: 82.1 kg

DRUGS (1)
  1. DUPIXENT [Suspect]
     Active Substance: DUPILUMAB
     Indication: DERMATITIS ATOPIC
     Dosage: 300 MG, QOD
     Route: 058

REACTIONS (2)
  - Product use issue [Unknown]
  - Knee operation [Unknown]

NARRATIVE: CASE EVENT DATE: 2020
